FAERS Safety Report 11201778 (Version 1)
Quarter: 2015Q2

REPORT INFORMATION
  Report Type: Spontaneous
  Country: US (occurrence: US)
  Receive Date: 20150619
  Receipt Date: 20150619
  Transmission Date: 20150821
  Serious: No
  Sender: FDA-Public Use
  Company Number: US-ELI_LILLY_AND_COMPANY-US201506005945

PATIENT
  Sex: Female

DRUGS (3)
  1. TRULICITY [Suspect]
     Active Substance: DULAGLUTIDE
     Indication: WEIGHT DECREASED
     Dosage: 0.75 MG, UNKNOWN
     Route: 065
     Dates: start: 201504
  2. TRULICITY [Suspect]
     Active Substance: DULAGLUTIDE
     Dosage: 1.5 MG, WEEKLY (1/W)
     Route: 065
  3. UCERIS [Concomitant]
     Active Substance: BUDESONIDE
     Dosage: 9 MG, QD

REACTIONS (4)
  - Abdominal pain [Unknown]
  - Diarrhoea [Unknown]
  - Off label use [Unknown]
  - Muscle spasms [Unknown]
